FAERS Safety Report 11642413 (Version 1)
Quarter: 2015Q4

REPORT INFORMATION
  Report Type: Spontaneous
  Country: US (occurrence: US)
  Receive Date: 20151019
  Receipt Date: 20151019
  Transmission Date: 20160304
  Serious: No
  Sender: FDA-Public Use
  Company Number: US-009507513-1510USA008082

PATIENT
  Age: 30 Year
  Sex: Female
  Weight: 72.57 kg

DRUGS (2)
  1. LEVOTHYROXINE SODIUM. [Concomitant]
     Active Substance: LEVOTHYROXINE SODIUM
     Indication: HYPOTHYROIDISM
  2. NEXPLANON [Suspect]
     Active Substance: ETONOGESTREL
     Indication: CONTRACEPTION
     Dosage: UNK
     Route: 059
     Dates: start: 20131120

REACTIONS (5)
  - Nausea [Unknown]
  - Pelvic pain [Unknown]
  - Hypoaesthesia [Unknown]
  - Device kink [Unknown]
  - Rash macular [Unknown]
